FAERS Safety Report 7109762-6 (Version None)
Quarter: 2010Q4

REPORT INFORMATION
  Report Type: 
  Country: None (occurrence: None)
  Receive Date: 20101116
  Receipt Date: 20101116
  Transmission Date: 20110411
  Serious: Yes (Other)
  Sender: FDA-Public Use
  Company Number: None

PATIENT
  Sex: Female
  Weight: 60.3284 kg

DRUGS (2)
  1. LYRICA [Suspect]
     Dosage: 100 MG 3X DAY ORAL
     Route: 048
     Dates: start: 20070901
  2. JANUVIA [Concomitant]

REACTIONS (4)
  - HEART RATE INCREASED [None]
  - MIDDLE INSOMNIA [None]
  - RESPIRATORY RATE INCREASED [None]
  - SOMNOLENCE [None]
